FAERS Safety Report 23567485 (Version 3)
Quarter: 2024Q2

REPORT INFORMATION
  Report Type: Spontaneous
  Country: AU (occurrence: AU)
  Receive Date: 20240226
  Receipt Date: 20240416
  Transmission Date: 20240716
  Serious: Yes (Hospitalization, Other)
  Sender: FDA-Public Use
  Company Number: AU-BIOVITRUM-2024-AU-002780

PATIENT

DRUGS (1)
  1. EMPAVELI [Suspect]
     Active Substance: PEGCETACOPLAN
     Indication: Paroxysmal nocturnal haemoglobinuria
     Dosage: TWICE WEEKLY
     Route: 058
     Dates: start: 20230227

REACTIONS (17)
  - Acute kidney injury [Unknown]
  - Breakthrough haemolysis [Unknown]
  - Nasopharyngitis [Unknown]
  - Bone marrow failure [Unknown]
  - Pancytopenia [Unknown]
  - Infection [Recovered/Resolved]
  - Abdominal pain [Unknown]
  - Platelet count decreased [Not Recovered/Not Resolved]
  - Epistaxis [Unknown]
  - Clostridium test positive [Unknown]
  - Fatigue [Unknown]
  - Brain fog [Unknown]
  - Contusion [Unknown]
  - Headache [Unknown]
  - Neutropenia [Unknown]
  - Thrombocytopenia [Unknown]
  - Pallor [Unknown]
